FAERS Safety Report 4989669-0 (Version None)
Quarter: 2006Q2

REPORT INFORMATION
  Report Type: 
  Country: None (occurrence: None)
  Receive Date: 20060426
  Receipt Date: 20060411
  Transmission Date: 20061013
  Serious: Yes (Hospitalization, Other)
  Sender: FDA-Public Use
  Company Number: CIP03001385

PATIENT
  Age: 48 Year
  Sex: Female
  Weight: 54.4 kg

DRUGS (16)
  1. ASACOL [Suspect]
     Indication: COLITIS ULCERATIVE
     Dosage: SEE IMAGE
     Route: 048
     Dates: start: 20030301, end: 20030301
  2. ASACOL [Suspect]
     Indication: COLITIS ULCERATIVE
     Dosage: SEE IMAGE
     Route: 048
     Dates: end: 20030301
  3. ASACOL [Suspect]
     Indication: COLITIS ULCERATIVE
     Dosage: SEE IMAGE
     Route: 048
     Dates: start: 20011201
  4. ACETAMINOPHEN [Suspect]
     Dosage: 2-3 G DAILY, ORAL
     Route: 048
     Dates: end: 20030301
  5. CLONOPIN [Suspect]
     Dosage: AS NEEDED, ORAL
     Route: 048
     Dates: end: 20030301
  6. TRAZODONE HCL [Suspect]
     Dates: end: 20030301
  7. PAXIL [Concomitant]
  8. CALCIUM CARBONATE (CALCIUM CARBONATE) [Concomitant]
  9. POTASSIUM CHLORIDE [Concomitant]
  10. HYDROCHLOROTHIAZIDE [Concomitant]
  11. CARDIZEM [Concomitant]
  12. AVAPRO [Concomitant]
  13. CORITFOAM (HYDROCORTISONE ACETATE) [Concomitant]
  14. BUSPAR [Concomitant]
  15. VALERIAN EXTRACT (VALERIANA OFFICINALIS EXTRACT) [Concomitant]
  16. IBUPROFEN [Concomitant]

REACTIONS (14)
  - ANXIETY [None]
  - AUTOIMMUNE DISORDER [None]
  - COLITIS ULCERATIVE [None]
  - CONDITION AGGRAVATED [None]
  - DEHYDRATION [None]
  - DEPRESSION [None]
  - EOSINOPHILIA [None]
  - HEPATIC FAILURE [None]
  - HEPATITIS [None]
  - HEPATOTOXICITY [None]
  - NIGHT SWEATS [None]
  - ORAL INTAKE REDUCED [None]
  - ORTHOSTATIC HYPOTENSION [None]
  - WEIGHT DECREASED [None]
